FAERS Safety Report 9269725 (Version 1)
Quarter: 2013Q2

REPORT INFORMATION
  Report Type: Report from Study
  Country: DE (occurrence: DE)
  Receive Date: 20130503
  Receipt Date: 20130503
  Transmission Date: 20140414
  Serious: Yes (Hospitalization)
  Sender: FDA-Public Use
  Company Number: PHHO2013DE005791

PATIENT
  Age: 61 Year
  Sex: Male
  Weight: 89 kg

DRUGS (11)
  1. TACROLIMUS [Suspect]
     Indication: RENAL TRANSPLANT
     Dosage: 10 MG, BID
     Route: 048
     Dates: start: 20130223
  2. SIMULECT [Suspect]
     Indication: RENAL TRANSPLANT
     Dosage: 20 MG, ONCE/SINGLE
     Route: 042
     Dates: start: 20130222, end: 20130226
  3. TORASEMIDE [Suspect]
     Dosage: 5 MG, UNK
     Route: 048
     Dates: start: 20130408
  4. CELLCEPT [Suspect]
     Dosage: 1000 UG, BID
     Route: 048
     Dates: start: 20130223, end: 20130317
  5. CELLCEPT [Suspect]
     Dosage: UNK
     Route: 048
     Dates: start: 20130424
  6. DECORTIN [Suspect]
     Indication: RENAL TRANSPLANT
     Dosage: 20 MG, ONCE/SINGLE
     Route: 048
     Dates: start: 20130222, end: 20130317
  7. DECORTIN [Suspect]
     Dosage: UNK
     Route: 048
     Dates: start: 20130420
  8. PANTOZOL [Concomitant]
     Indication: PROPHYLAXIS AGAINST GASTROINTESTINAL ULCER
     Dosage: 40 MG, ONCE/SINGLE
     Route: 048
     Dates: start: 20130223
  9. L-THYROX [Concomitant]
     Indication: HYPOTHYROIDISM
     Dosage: 75 MG/DAY
     Route: 048
     Dates: start: 20080109
  10. SPIRIVA [Concomitant]
     Indication: CHRONIC OBSTRUCTIVE PULMONARY DISEASE
     Dosage: 18 UG, UNK
     Route: 048
     Dates: start: 20071130
  11. REDUCTO SPEZIAL [Concomitant]
     Indication: HYPOPHOSPHATAEMIA
     Dosage: 6 DF (TABLETS)
     Route: 048
     Dates: start: 20130408

REACTIONS (2)
  - Sudden hearing loss [Not Recovered/Not Resolved]
  - Lymphatic disorder [Not Recovered/Not Resolved]
